FAERS Safety Report 8903535 (Version 2)
Quarter: 2012Q4

REPORT INFORMATION
  Report Type: Report from Study
  Country: DE (occurrence: DE)
  Receive Date: 20121113
  Receipt Date: 20121116
  Transmission Date: 20130627
  Serious: Yes (Hospitalization)
  Sender: FDA-Public Use
  Company Number: DE-TEVA-2010003112

PATIENT
  Age: 41 Year
  Sex: Female
  Weight: 72 kg

DRUGS (10)
  1. MYOCET [Suspect]
     Indication: BREAST CANCER
     Route: 042
     Dates: start: 20100329, end: 20100531
  2. MYOCET [Suspect]
     Route: 042
     Dates: start: 20100531, end: 20100620
  3. MYOCET [Suspect]
     Dates: start: 20100621
  4. PACLITAXEL [Suspect]
     Indication: BREAST CANCER
     Route: 042
     Dates: start: 20100329, end: 20100531
  5. PACLITAXEL [Suspect]
     Route: 042
     Dates: start: 20100531, end: 20100620
  6. PACLITAXEL [Suspect]
     Dates: start: 20100621
  7. LAPATINIB [Suspect]
     Indication: BREAST CANCER
     Dosage: 1250 Milligram Daily;
     Route: 048
     Dates: start: 20100329, end: 20100511
  8. LAPATINIB [Suspect]
     Dosage: 1250 Milligram Daily;
     Route: 048
     Dates: start: 20100531, end: 20100620
  9. LAPATINIB [Suspect]
     Route: 048
     Dates: start: 20100621
  10. RAMIPRIL [Concomitant]
     Indication: CARDIAC DISORDER
     Dosage: 1.25 Milligram Daily;
     Route: 048
     Dates: start: 20100510

REACTIONS (3)
  - Hepatic enzyme increased [Not Recovered/Not Resolved]
  - Biliary dilatation [Recovered/Resolved with Sequelae]
  - Bile duct stenosis [Not Recovered/Not Resolved]
